FAERS Safety Report 25220995 (Version 1)
Quarter: 2025Q2

REPORT INFORMATION
  Report Type: Spontaneous
  Country: CA (occurrence: CA)
  Receive Date: 20250421
  Receipt Date: 20250421
  Transmission Date: 20250717
  Serious: Yes (Congenital Anomaly, Other)
  Sender: MYLAN
  Company Number: CA-MYLANLABS-2025M1033418

PATIENT
  Sex: Female
  Weight: 1 kg

DRUGS (2)
  1. PREGABALIN [Suspect]
     Active Substance: PREGABALIN
     Indication: Fibromyalgia
  2. PREGABALIN [Suspect]
     Active Substance: PREGABALIN

REACTIONS (4)
  - Aqueductal stenosis [Unknown]
  - Cerebral ventricle dilatation [Unknown]
  - Cerebrospinal fluid reservoir placement [Unknown]
  - Ventriculo-peritoneal shunt [Unknown]
